FAERS Safety Report 9641719 (Version 3)
Quarter: 2013Q4

REPORT INFORMATION
  Report Type: Spontaneous
  Country: US (occurrence: US)
  Receive Date: 20131023
  Receipt Date: 20131219
  Transmission Date: 20140711
  Serious: Yes (Hospitalization)
  Sender: FDA-Public Use
  Company Number: US-B.I. PHARMACEUTICALS,INC./RIDGEFIELD-2013-BI-13384BP

PATIENT
  Sex: Male
  Weight: 87.54 kg

DRUGS (14)
  1. PRADAXA [Suspect]
     Indication: ANTICOAGULANT THERAPY
     Dosage: 300 MG
     Dates: start: 20110922, end: 20120310
  2. PRADAXA [Suspect]
     Indication: CEREBROVASCULAR ACCIDENT PROPHYLAXIS
  3. PRADAXA [Suspect]
     Indication: ATRIAL FIBRILLATION
  4. BABY ASPIRIN [Concomitant]
     Dosage: 81 MG
  5. LISINOPRIL [Concomitant]
     Dosage: 10 MG
     Dates: start: 2005
  6. SIMVASTATIN [Concomitant]
     Dosage: 40 MG
     Dates: start: 2005
  7. LEVOTHYROXINE [Concomitant]
     Indication: HYPOTHYROIDISM
     Dosage: 125 MCG
     Dates: start: 2005
  8. METFORMIN [Concomitant]
     Indication: GLUCOSE TOLERANCE IMPAIRED
     Dosage: 500 MG
     Dates: start: 2005
  9. OCUVITE [Concomitant]
     Dates: start: 2005
  10. FERROUS SULFATE [Concomitant]
     Indication: HAEMOGLOBIN DECREASED
     Dosage: 325 MG
  11. VITAMIN D [Concomitant]
     Dosage: 2000 U
  12. AZOPT [Concomitant]
     Route: 031
     Dates: start: 2005
  13. ISTALOL [Concomitant]
     Route: 031
  14. XALATAN [Concomitant]
     Route: 031
     Dates: start: 2005

REACTIONS (2)
  - Haemorrhoidal haemorrhage [Recovered/Resolved]
  - Haemorrhagic anaemia [Unknown]
